FAERS Safety Report 14383406 (Version 1)
Quarter: 2018Q1

REPORT INFORMATION
  Report Type: Other
  Country: CA (occurrence: CA)
  Receive Date: 20180115
  Receipt Date: 20180115
  Transmission Date: 20180509
  Serious: No
  Sender: FDA-Public Use
  Company Number: CA-APOTEX-2018AP005103

PATIENT
  Age: 54 Year
  Sex: Female
  Weight: 81 kg

DRUGS (4)
  1. PAROXETINE. [Suspect]
     Active Substance: PAROXETINE
     Indication: DEPRESSION
     Dosage: 20 MG, BID
     Route: 048
  2. PAROXETINE. [Suspect]
     Active Substance: PAROXETINE
     Indication: ANXIETY
  3. DULOXETINE. [Suspect]
     Active Substance: DULOXETINE
     Indication: DEPRESSION
     Dosage: 30 MG, QD
     Route: 048
  4. DULOXETINE. [Suspect]
     Active Substance: DULOXETINE
     Indication: ANXIETY

REACTIONS (2)
  - Product substitution issue [Unknown]
  - Drug ineffective [Unknown]
